FAERS Safety Report 17655935 (Version 1)
Quarter: 2020Q2

REPORT INFORMATION
  Report Type: Spontaneous
  Country: DE (occurrence: DE)
  Receive Date: 20200410
  Receipt Date: 20200410
  Transmission Date: 20200713
  Serious: Yes (Hospitalization)
  Sender: FDA-Public Use
  Company Number: DE-TEVA-2020-DE-1221654

PATIENT
  Age: 63 Year
  Sex: Male

DRUGS (9)
  1. METOCLOPRAMID [Concomitant]
     Active Substance: METOCLOPRAMIDE
     Dosage: 10 MG, REQUIREMENT
  2. PREDNISOLON [Suspect]
     Active Substance: PREDNISOLONE
     Dosage: 10 MILLIGRAM DAILY;
  3. VELMETIA 50MG/1000MG [Concomitant]
     Dosage: 50|100 MG, 1-0-1-0
  4. TILIDINE/NALOXONE [Concomitant]
     Active Substance: NALOXONE HYDROCHLORIDE\TILIDINE HYDROCHLORIDE
     Dosage: 8|100 MG, REQUIREMENT
  5. COLECALCIFEROL (VITAMIN D) [Concomitant]
     Dosage: 1000 IE, 1-0-0-0
  6. SPIRONOLACTON [Concomitant]
     Active Substance: SPIRONOLACTONE
     Dosage: 25 MG
  7. TORASEMID [Concomitant]
     Active Substance: TORSEMIDE
     Dosage: 5 MG
  8. METAMIZOL [Concomitant]
     Active Substance: METAMIZOLE SODIUM
     Dosage: 500 MG, 2-2-2-2
  9. NEXAVAR [Suspect]
     Active Substance: SORAFENIB
     Dosage: 400 MILLIGRAM DAILY;

REACTIONS (1)
  - Ascites [Unknown]

NARRATIVE: CASE EVENT DATE: 20191213
